FAERS Safety Report 7288934-4 (Version None)
Quarter: 2011Q1

REPORT INFORMATION
  Report Type: 
  Country: None (occurrence: None)
  Receive Date: 20110211
  Receipt Date: 20110202
  Transmission Date: 20110831
  Serious: Yes (Hospitalization)
  Sender: FDA-Public Use
  Company Number: CH-ASTRAZENECA-2010SE50230

PATIENT
  Age: 70 Year
  Sex: Male

DRUGS (12)
  1. ZOLADEX [Suspect]
     Indication: PROSTATE CANCER
     Route: 058
     Dates: end: 20090301
  2. TAXOTERE [Suspect]
     Indication: PROSTATE CANCER
     Dosage: CYCLIC
     Route: 041
     Dates: start: 20081216, end: 20090310
  3. OMEPRAZOLE [Concomitant]
     Route: 048
  4. MORPHINE [Concomitant]
     Route: 048
  5. PREDNISOLONE [Suspect]
     Route: 048
  6. CALCIUM+D3 [Concomitant]
     Route: 048
  7. NOVODIGAL [Concomitant]
     Route: 048
     Dates: start: 20090301, end: 20090301
  8. METOCLOPRAMIDE HCL [Concomitant]
     Dosage: AS NECESSARY
     Route: 048
     Dates: end: 20090301
  9. ZOMETA [Suspect]
     Indication: PROSTATE CANCER
     Route: 041
     Dates: start: 20081216, end: 20090317
  10. METOHEXAL [Concomitant]
     Route: 048
  11. PREDNISONE [Suspect]
     Indication: PROSTATE CANCER
     Dosage: CYCLIC
     Route: 065
     Dates: start: 20081216, end: 20090310
  12. MACROGOL [Concomitant]
     Route: 048

REACTIONS (6)
  - SEPSIS [None]
  - ANAEMIA [None]
  - CHOLESTATIC LIVER INJURY [None]
  - NEUTROPENIA [None]
  - ARRHYTHMIA [None]
  - JAUNDICE CHOLESTATIC [None]
